FAERS Safety Report 5032794-9 (Version None)
Quarter: 2006Q2

REPORT INFORMATION
  Report Type: 
  Country: None (occurrence: None)
  Receive Date: 20060622
  Receipt Date: 20030611
  Transmission Date: 20061013
  Serious: Yes (Death, Other)
  Sender: FDA-Public Use
  Company Number: ES-GILEAD-2003-05624

PATIENT
  Sex: Male
  Weight: 61.5 kg

DRUGS (7)
  1. VIREAD [Suspect]
     Indication: HIV INFECTION
     Route: 048
     Dates: start: 20021217, end: 20030422
  2. EFAVIRENZ [Concomitant]
     Indication: HIV INFECTION
     Dates: start: 20020515
  3. LAMIVUDINE [Concomitant]
     Indication: HIV INFECTION
  4. ACETENSIL [Concomitant]
     Indication: HYPERTENSION
  5. CARDURAN [Concomitant]
     Indication: HYPERTENSION
  6. CARRELDON [Concomitant]
     Indication: ISCHAEMIC CARDIOMYOPATHY
  7. OMEPRAZOLE [Concomitant]
     Indication: PROPHYLAXIS AGAINST GASTROINTESTINAL ULCER

REACTIONS (3)
  - MULTI-ORGAN FAILURE [None]
  - MYOCARDIAL INFARCTION [None]
  - RENAL IMPAIRMENT [None]
